FAERS Safety Report 8334680 (Version 4)
Quarter: 2012Q4

REPORT INFORMATION
  Report Type: 
  Country: US (occurrence: US)
  Receive Date: 20120112
  Receipt Date: 20121004
  Transmission Date: 20130627
  Serious: Yes (Death, Hospitalization)
  Sender: FDA-Public Use
  Company Number: PHEH2012US000926

PATIENT
  Age: 73 Year
  Sex: Male
  Weight: 56.24 kg

DRUGS (1)
  1. ZOMETA [Suspect]
     Indication: METASTASES TO BONE
     Dosage: 3 mg, every 3 weeks
     Route: 042
     Dates: start: 20110404, end: 20120206

REACTIONS (2)
  - Lung cancer metastatic [Fatal]
  - Pain [Recovering/Resolving]
